FAERS Safety Report 21458060 (Version 1)
Quarter: 2022Q4

REPORT INFORMATION
  Report Type: Spontaneous
  Country: NO (occurrence: NO)
  Receive Date: 20221014
  Receipt Date: 20221014
  Transmission Date: 20230113
  Serious: Yes (Disabling)
  Sender: FDA-Public Use
  Company Number: None

PATIENT
  Age: 32 Year
  Sex: Male
  Weight: 61 kg

DRUGS (5)
  1. REMERON [Suspect]
     Active Substance: MIRTAZAPINE
     Indication: Depression
     Dosage: UNK
     Dates: start: 202110, end: 202201
  2. COMIRNATY [Suspect]
     Active Substance: TOZINAMERAN
     Indication: Immunisation
     Dosage: DOSE NO. IN SERIES: 1
     Dates: start: 20211021
  3. COMIRNATY [Suspect]
     Active Substance: TOZINAMERAN
     Dosage: DOSE NO. IN SERIES: 2
     Dates: start: 20211118
  4. COMIRNATY [Suspect]
     Active Substance: TOZINAMERAN
     Dosage: DOSE NO. IN SERIES: 3
     Dates: start: 20220331
  5. VITAMINS [Concomitant]
     Active Substance: VITAMINS
     Dosage: UNK UNK, QD

REACTIONS (7)
  - Indifference [Not Recovered/Not Resolved]
  - Asocial behaviour [Unknown]
  - Somnolence [Not Recovered/Not Resolved]
  - Decreased interest [Unknown]
  - Dyspnoea [Unknown]
  - Hypersomnia [Not Recovered/Not Resolved]
  - Suffocation feeling [Unknown]

NARRATIVE: CASE EVENT DATE: 20211101
